FAERS Safety Report 17984617 (Version 2)
Quarter: 2020Q3

REPORT INFORMATION
  Report Type: Spontaneous
  Country: US (occurrence: US)
  Receive Date: 20200706
  Receipt Date: 20200829
  Transmission Date: 20201103
  Serious: No
  Sender: FDA-Public Use
  Company Number: US-SA-2020SA173420

PATIENT

DRUGS (12)
  1. DERMA SMOOTH [Concomitant]
  2. TRIAMCINOLONE [Concomitant]
     Active Substance: TRIAMCINOLONE
  3. DUPIXENT [Suspect]
     Active Substance: DUPILUMAB
     Indication: PSORIASIS
     Dosage: 300 MG, QOW
     Route: 058
     Dates: start: 20200520
  4. DUPIXENT [Suspect]
     Active Substance: DUPILUMAB
     Indication: DERMATITIS ATOPIC
  5. EUCRISA [Concomitant]
     Active Substance: CRISABOROLE
  6. TOPICORTE [Concomitant]
     Active Substance: DESOXIMETASONE
  7. DIFLORASONE [Concomitant]
     Active Substance: DIFLORASONE DIACETATE
  8. VANOS [Concomitant]
     Active Substance: FLUOCINONIDE
  9. FLUOCINONIDE. [Concomitant]
     Active Substance: FLUOCINONIDE
  10. HYLATOPICPLUS [Concomitant]
     Active Substance: EMOLLIENTS
  11. XYZAL [Concomitant]
     Active Substance: LEVOCETIRIZINE DIHYDROCHLORIDE
  12. PREDNISONE. [Concomitant]
     Active Substance: PREDNISONE

REACTIONS (5)
  - Urinary tract infection [Recovered/Resolved]
  - Conjunctivitis [Not Recovered/Not Resolved]
  - Rash [Recovered/Resolved]
  - Product use in unapproved indication [Unknown]
  - Eye infection [Not Recovered/Not Resolved]

NARRATIVE: CASE EVENT DATE: 2020
